FAERS Safety Report 5571841-2 (Version None)
Quarter: 2007Q4

REPORT INFORMATION
  Report Type: 
  Country: None (occurrence: None)
  Receive Date: 20071219
  Receipt Date: 20071210
  Transmission Date: 20080405
  Serious: Yes (Hospitalization)
  Sender: FDA-Public Use
  Company Number: 2007US002866

PATIENT
  Age: 42 Year
  Sex: Male

DRUGS (19)
  1. PROGRAF [Suspect]
     Indication: RENAL TRANSPLANT
     Dates: end: 20071008
  2. PROCRIT [Suspect]
     Indication: ANAEMIA OF CHRONIC DISEASE
     Dosage: 20000 IU, OTHER, SUBCUTANEOUS
     Route: 058
     Dates: start: 20061201, end: 20071012
  3. GANCICLOVIR [Suspect]
     Indication: CYTOMEGALOVIRUS INFECTION
     Dates: end: 20071002
  4. DAPSONE [Suspect]
     Indication: ANTIBIOTIC PROPHYLAXIS
     Dates: end: 20071008
  5. MYCOPHENOLATE MOFETIL [Suspect]
     Indication: RENAL TRANSPLANT
     Dates: end: 20071008
  6. LANTUS [Concomitant]
  7. PHOSLO [Concomitant]
  8. NORVASC [Concomitant]
  9. PROTONIX [Concomitant]
  10. CLONIDINE [Concomitant]
  11. METOPROLOL TARTRATE [Concomitant]
  12. FERROUS SULFATE TAB [Concomitant]
  13. AMBIEN [Concomitant]
  14. NOVOLIN (INSULIN HUMAN INJECITON, ISOPHANE, INSULIN HUMAN) [Concomitant]
  15. NEPHRO-VITE RX (ASCORBIC ACID, VITAMIN B NOS, FOLIC ACID) [Concomitant]
  16. ERGOCALCIFEROL (ERGOCALCIFEROL) [Concomitant]
  17. CIPRO [Concomitant]
  18. G-CSF (GRANULOCYTE COLONY STIMULATING FACTOR) [Concomitant]
  19. FOLIC ACID [Concomitant]

REACTIONS (10)
  - APLASIA PURE RED CELL [None]
  - BONE MARROW FAILURE [None]
  - DIVERTICULUM [None]
  - DRUG SPECIFIC ANTIBODY ABSENT [None]
  - HAEMODIALYSIS [None]
  - KIDNEY TRANSPLANT REJECTION [None]
  - PAIN [None]
  - PERICARDIAL EFFUSION [None]
  - POLYOMAVIRUS-ASSOCIATED NEPHROPATHY [None]
  - SURGICAL FAILURE [None]
